FAERS Safety Report 18570717 (Version 1)
Quarter: 2020Q4

REPORT INFORMATION
  Report Type: Spontaneous
  Country: ES (occurrence: ES)
  Receive Date: 20201202
  Receipt Date: 20201202
  Transmission Date: 20210114
  Serious: Yes (Other)
  Sender: FDA-Public Use
  Company Number: ES-MYLANLABS-2020M1097248

PATIENT
  Age: 65 Year
  Sex: Female

DRUGS (6)
  1. LEVETIRACETAM. [Suspect]
     Active Substance: LEVETIRACETAM
     Dosage: 500 MILLIGRAM, QD (250 MILLIGRAM, 2X/DAY (BID))
  2. DEPAKINE                           /00228502/ [Concomitant]
     Active Substance: VALPROATE SODIUM
     Indication: PRODUCT USED FOR UNKNOWN INDICATION
     Dosage: UNK UNK, QD (500-200-500 MG DAILY)
  3. DEPAKINE                           /00228502/ [Concomitant]
     Active Substance: VALPROATE SODIUM
     Dosage: 1000 MILLIGRAM, QD (500 MILLIGRAM, 2X/DAY (BID))
  4. LEVETIRACETAM. [Suspect]
     Active Substance: LEVETIRACETAM
     Indication: PRODUCT USED FOR UNKNOWN INDICATION
     Dosage: 2000 MILLIGRAM, QD (1000 MILLIGRAM, 2X/DAY (BID))
  5. DEPAKINE                           /00228502/ [Concomitant]
     Active Substance: VALPROATE SODIUM
     Dosage: UNK UNK, QD (500-200-500 MG DAILY)
  6. ZEBINIX [Suspect]
     Active Substance: ESLICARBAZEPINE ACETATE
     Indication: PRODUCT USED FOR UNKNOWN INDICATION
     Dosage: 800 MILLIGRAM, QD

REACTIONS (3)
  - Partial seizures with secondary generalisation [Recovered/Resolved]
  - Hallucination, auditory [Unknown]
  - Hyponatraemia [Unknown]
